FAERS Safety Report 7890612-5 (Version None)
Quarter: 2011Q4

REPORT INFORMATION
  Report Type: 
  Country: None (occurrence: None)
  Receive Date: 20111103
  Receipt Date: 20110721
  Transmission Date: 20120403
  Serious: No
  Sender: FDA-Public Use
  Company Number: US-AMGEN-USASP2011037184

PATIENT
  Sex: Female

DRUGS (2)
  1. ENBREL [Suspect]
     Indication: RHEUMATOID ARTHRITIS
     Dosage: 25 MG, QWK
     Dates: start: 20011001
  2. METHOTREXATE [Concomitant]
     Dosage: 6 MG, UNK
     Dates: start: 19900101

REACTIONS (1)
  - INJECTION SITE PAIN [None]
